FAERS Safety Report 11115090 (Version 1)
Quarter: 2015Q2

REPORT INFORMATION
  Report Type: Report from Study
  Country: FR (occurrence: FR)
  Receive Date: 20150515
  Receipt Date: 20150515
  Transmission Date: 20150821
  Serious: Yes (Death, Hospitalization, Other)
  Sender: FDA-Public Use
  Company Number: FR-GLAXOSMITHKLINE-FR2015GSK065891

PATIENT
  Age: 2 Year
  Sex: Female

DRUGS (9)
  1. OMEGA-3-ACID ETHYL ESTERS. [Suspect]
     Active Substance: OMEGA-3-ACID ETHYL ESTERS
     Indication: ISCHAEMIC HEART DISEASE PROPHYLAXIS
     Dosage: UNK
     Dates: start: 20061019, end: 20061025
  2. NITRIDERM [Concomitant]
     Active Substance: NITROGLYCERIN
  3. PLAVIX [Concomitant]
     Active Substance: CLOPIDOGREL BISULFATE
  4. KARDEGIC [Concomitant]
     Active Substance: ASPIRIN LYSINE
  5. ADANCOR [Concomitant]
     Active Substance: NICORANDIL
  6. APROVEL [Concomitant]
     Active Substance: IRBESARTAN
  7. TAHOR [Concomitant]
     Active Substance: ATORVASTATIN CALCIUM
  8. AMAREL [Concomitant]
     Active Substance: GLIMEPIRIDE
  9. CARDENSIEL [Concomitant]
     Active Substance: BISOPROLOL FUMARATE

REACTIONS (2)
  - Myocardial infarction [Fatal]
  - Cerebrovascular accident [Fatal]

NARRATIVE: CASE EVENT DATE: 20071209
